FAERS Safety Report 9089634 (Version 2)
Quarter: 2013Q2

REPORT INFORMATION
  Report Type: Spontaneous
  Country: US (occurrence: US)
  Receive Date: 20130130
  Receipt Date: 20130530
  Transmission Date: 20140414
  Serious: No
  Sender: FDA-Public Use
  Company Number: US-009507513-1301USA009457

PATIENT
  Sex: 0

DRUGS (1)
  1. ZIOPTAN [Suspect]
     Route: 047

REACTIONS (2)
  - Eye operation [Unknown]
  - Cystoid macular oedema [Unknown]
